FAERS Safety Report 4734112-X (Version None)
Quarter: 2005Q3

REPORT INFORMATION
  Report Type: 
  Country: None (occurrence: None)
  Receive Date: 20050729
  Receipt Date: 20050718
  Transmission Date: 20060218
  Serious: Yes (Other)
  Sender: FDA-Public Use
  Company Number: 2005084442

PATIENT
  Age: 59 Year
  Sex: Female
  Weight: 85.7298 kg

DRUGS (1)
  1. ESTRING [Suspect]
     Indication: HORMONE REPLACEMENT THERAPY
     Dosage: VAGINAL
     Route: 067
     Dates: start: 20050408, end: 20050501

REACTIONS (8)
  - ABASIA [None]
  - ARTHRALGIA [None]
  - BACK PAIN [None]
  - INFECTION [None]
  - INFLAMMATION [None]
  - INSOMNIA [None]
  - JOINT SWELLING [None]
  - VAGINAL PAIN [None]
